FAERS Safety Report 9528460 (Version 1)
Quarter: 2013Q3

REPORT INFORMATION
  Report Type: Spontaneous
  Country: AU (occurrence: None)
  Receive Date: 20130913
  Receipt Date: 20130913
  Transmission Date: 20140515
  Serious: Yes (Life-Threatening)
  Sender: FDA-Public Use
  Company Number: FK201304169

PATIENT
  Age: 48 Year
  Sex: Female

DRUGS (1)
  1. DOXYCYCLINE [Suspect]
     Indication: Q FEVER
     Dosage: UNKNOWN, UNKNOWN, UNKNOWN

REACTIONS (2)
  - Anaphylactic reaction [None]
  - No reaction on previous exposure to drug [None]
